FAERS Safety Report 15207749 (Version 1)
Quarter: 2018Q3

REPORT INFORMATION
  Report Type: Spontaneous
  Country: US (occurrence: US)
  Receive Date: 20180628
  Receipt Date: 20180628
  Transmission Date: 20181010
  Serious: Yes (Disabling, Other)
  Sender: FDA-Public Use
  Company Number: None

PATIENT
  Age: 49 Year
  Sex: Female
  Weight: 76.5 kg

DRUGS (1)
  1. FLUTICASONE PROPIONATE NASAL SPRAY , USP, 50MCG PER SPRAY [Suspect]
     Active Substance: FLUTICASONE PROPIONATE
     Indication: NASAL CONGESTION
     Dosage: ?          QUANTITY:2 DF DOSAGE FORM;?
     Route: 055
     Dates: start: 20100630

REACTIONS (3)
  - Product use issue [None]
  - Sinusitis [None]
  - Product contamination physical [None]

NARRATIVE: CASE EVENT DATE: 20180324
